FAERS Safety Report 9272575 (Version 1)
Quarter: 2013Q2

REPORT INFORMATION
  Report Type: Spontaneous
  Country: US (occurrence: US)
  Receive Date: 20130506
  Receipt Date: 20130506
  Transmission Date: 20140414
  Serious: No
  Sender: FDA-Public Use
  Company Number: US-ASTRAZENECA-2012SE96578

PATIENT
  Sex: Male

DRUGS (5)
  1. PRILOSEC OTC [Suspect]
     Indication: PRODUCT USED FOR UNKNOWN INDICATION
     Route: 048
     Dates: start: 20121226, end: 20121226
  2. PLAVIX [Concomitant]
  3. LIPITOR [Concomitant]
  4. VITAMIN D [Concomitant]
     Dosage: N
  5. ATENOLOL [Concomitant]

REACTIONS (1)
  - Dysgeusia [Recovered/Resolved]
